FAERS Safety Report 24541410 (Version 2)
Quarter: 2024Q4

REPORT INFORMATION
  Report Type: Spontaneous
  Country: US (occurrence: US)
  Receive Date: 20241023
  Receipt Date: 20241210
  Transmission Date: 20250115
  Serious: No
  Sender: MARINUS PHARMACEUTICALS
  Company Number: US-MARINUS PHARMACEUTICALS, INC.-MAR2024000209

PATIENT

DRUGS (7)
  1. ZTALMY [Suspect]
     Active Substance: GANAXOLONE
     Indication: CDKL5 deficiency disorder
     Dosage: 12 MILLILITER, TID
     Route: 048
     Dates: start: 20240715
  2. ZTALMY [Suspect]
     Active Substance: GANAXOLONE
     Dosage: 08 MILLILITER, BID
     Route: 048
  3. ZTALMY [Suspect]
     Active Substance: GANAXOLONE
     Dosage: 08 MILLILITER, BID
     Route: 048
  4. ZTALMY [Suspect]
     Active Substance: GANAXOLONE
     Dosage: 08 MILLILITER, BID
     Route: 048
  5. BACLOFEN [Concomitant]
     Active Substance: BACLOFEN
     Indication: Product used for unknown indication
     Route: 065
  6. VALPROIC ACID [Concomitant]
     Active Substance: VALPROIC ACID
     Indication: Product used for unknown indication
     Route: 065
  7. FELBAMATE [Concomitant]
     Active Substance: FELBAMATE
     Indication: Product used for unknown indication
     Dosage: UNK
     Route: 065

REACTIONS (1)
  - Drug ineffective [Recovered/Resolved]

NARRATIVE: CASE EVENT DATE: 20240715
